FAERS Safety Report 20567526 (Version 2)
Quarter: 2022Q1

REPORT INFORMATION
  Report Type: Report from Study
  Country: BR (occurrence: BR)
  Receive Date: 20220308
  Receipt Date: 20220325
  Transmission Date: 20220423
  Serious: Yes (Other)
  Sender: FDA-Public Use
  Company Number: BR-JNJFOC-20220260503

PATIENT
  Age: 45 Year
  Sex: Male
  Weight: 42 kg

DRUGS (2)
  1. STELARA [Suspect]
     Active Substance: USTEKINUMAB
     Indication: Crohn^s disease
     Route: 042
  2. STELARA [Suspect]
     Active Substance: USTEKINUMAB
     Route: 058
     Dates: start: 20191125

REACTIONS (5)
  - Dysentery [Not Recovered/Not Resolved]
  - Renal failure [Unknown]
  - Nephrolithiasis [Not Recovered/Not Resolved]
  - Functional gastrointestinal disorder [Unknown]
  - Product dose omission issue [Unknown]

NARRATIVE: CASE EVENT DATE: 20211201
